FAERS Safety Report 20084928 (Version 1)
Quarter: 2021Q4

REPORT INFORMATION
  Report Type: Spontaneous
  Country: IN (occurrence: IN)
  Receive Date: 20211118
  Receipt Date: 20211118
  Transmission Date: 20220303
  Serious: Yes (Death)
  Sender: FDA-Public Use
  Company Number: IN-NOVARTISPH-NVSC2021IN262420

PATIENT
  Age: 57 Year
  Sex: Male

DRUGS (1)
  1. BROLUCIZUMAB [Suspect]
     Active Substance: BROLUCIZUMAB
     Indication: Retinal vein occlusion
     Dosage: 0.05 ML
     Route: 047
     Dates: start: 20210416

REACTIONS (2)
  - COVID-19 [Fatal]
  - Off label use [Fatal]

NARRATIVE: CASE EVENT DATE: 20210416
